FAERS Safety Report 12421405 (Version 1)
Quarter: 2016Q2

REPORT INFORMATION
  Report Type: Spontaneous
  Country: FR (occurrence: FR)
  Receive Date: 20160531
  Receipt Date: 20160531
  Transmission Date: 20160815
  Serious: Yes (Disabling)
  Sender: FDA-Public Use
  Company Number: FR-JNJFOC-20160526246

PATIENT
  Age: 59 Year
  Sex: Male

DRUGS (6)
  1. REMICADE [Suspect]
     Active Substance: INFLIXIMAB
     Indication: COLITIS ULCERATIVE
     Route: 042
     Dates: start: 20160201
  2. REMICADE [Suspect]
     Active Substance: INFLIXIMAB
     Indication: ENTEROCOLITIS HAEMORRHAGIC
     Route: 042
     Dates: start: 201410
  3. REMICADE [Suspect]
     Active Substance: INFLIXIMAB
     Indication: ENTEROCOLITIS HAEMORRHAGIC
     Route: 042
     Dates: start: 20160201
  4. REMICADE [Suspect]
     Active Substance: INFLIXIMAB
     Indication: ENTEROCOLITIS HAEMORRHAGIC
     Route: 042
     Dates: start: 201510
  5. REMICADE [Suspect]
     Active Substance: INFLIXIMAB
     Indication: COLITIS ULCERATIVE
     Route: 042
     Dates: start: 201410
  6. REMICADE [Suspect]
     Active Substance: INFLIXIMAB
     Indication: COLITIS ULCERATIVE
     Route: 042
     Dates: start: 201510

REACTIONS (2)
  - Arthralgia [Recovered/Resolved]
  - Pericarditis [Recovering/Resolving]

NARRATIVE: CASE EVENT DATE: 201412
